FAERS Safety Report 13109038 (Version 3)
Quarter: 2017Q2

REPORT INFORMATION
  Report Type: Spontaneous
  Country: DE (occurrence: DE)
  Receive Date: 20170112
  Receipt Date: 20170417
  Transmission Date: 20170830
  Serious: Yes (Hospitalization)
  Sender: FDA-Public Use
  Company Number: DE-PFIZER INC-2016572080

PATIENT
  Age: 71 Year
  Sex: Male
  Weight: 108 kg

DRUGS (6)
  1. INSPRA [Suspect]
     Active Substance: EPLERENONE
     Indication: CARDIAC OPERATION
     Dosage: 25 MG, 1X/DAY
     Route: 048
     Dates: end: 20161212
  2. INSPRA [Suspect]
     Active Substance: EPLERENONE
     Dosage: UNK
     Route: 048
     Dates: start: 20170120
  3. XARELTO [Concomitant]
     Active Substance: RIVAROXABAN
     Dosage: UNK
  4. CANDESARTAN. [Suspect]
     Active Substance: CANDESARTAN
     Indication: CARDIAC OPERATION
     Dosage: 8 MG, UNK
     Route: 065
     Dates: start: 20161120, end: 20161125
  5. TORASEMIDE [Concomitant]
     Active Substance: TORSEMIDE
     Dosage: UNK
  6. DELIX [Suspect]
     Active Substance: RAMIPRIL
     Indication: CARDIAC OPERATION
     Dosage: 5 MG, UNK
     Route: 048
     Dates: start: 20161107, end: 20161118

REACTIONS (2)
  - Blood pressure decreased [Unknown]
  - Dyspnoea [Recovered/Resolved]

NARRATIVE: CASE EVENT DATE: 20161113
